FAERS Safety Report 18417398 (Version 1)
Quarter: 2020Q4

REPORT INFORMATION
  Report Type: Spontaneous
  Country: US (occurrence: US)
  Receive Date: 20201022
  Receipt Date: 20201022
  Transmission Date: 20210114
  Serious: No
  Sender: FDA-Public Use
  Company Number: 2020SGN03002

PATIENT
  Sex: Female

DRUGS (3)
  1. TUKYSA [Suspect]
     Active Substance: TUCATINIB
     Indication: BREAST CANCER FEMALE
  2. HERCEPTIN [Concomitant]
     Active Substance: TRASTUZUMAB
     Indication: BREAST CANCER FEMALE
  3. CAPECITABINE. [Concomitant]
     Active Substance: CAPECITABINE
     Indication: BREAST CANCER FEMALE

REACTIONS (10)
  - Urinary tract infection [Unknown]
  - Hospice care [Unknown]
  - Skin ulcer [Unknown]
  - Blood potassium decreased [Unknown]
  - Tumour marker decreased [Unknown]
  - Memory impairment [Unknown]
  - Speech disorder [Unknown]
  - Blood calcium decreased [Unknown]
  - Contusion [Unknown]
  - Confusional state [Unknown]
